FAERS Safety Report 19958527 (Version 3)
Quarter: 2023Q4

REPORT INFORMATION
  Report Type: Spontaneous
  Country: JP (occurrence: JP)
  Receive Date: 20211015
  Receipt Date: 20231006
  Transmission Date: 20240109
  Serious: Yes (Life-Threatening, Hospitalization)
  Sender: FDA-Public Use
  Company Number: JP-BAYER-2021A229916

PATIENT
  Age: 54 Year
  Sex: Male

DRUGS (1)
  1. IOPROMIDE [Suspect]
     Active Substance: IOPROMIDE
     Dosage: 100ML?IV, ONCE
     Dates: start: 20211005, end: 20211005

REACTIONS (6)
  - Anaphylactic shock [Recovered/Resolved with Sequelae]
  - Cardio-respiratory arrest [Recovered/Resolved with Sequelae]
  - Loss of consciousness [Recovered/Resolved with Sequelae]
  - Fall [None]
  - Traumatic haemorrhage [None]
  - Traumatic intracranial haemorrhage [None]

NARRATIVE: CASE EVENT DATE: 20211005
